FAERS Safety Report 8337857-8 (Version None)
Quarter: 2012Q2

REPORT INFORMATION
  Report Type: 
  Country: None (occurrence: None)
  Receive Date: 20120504
  Receipt Date: 20120424
  Transmission Date: 20120825
  Serious: Yes (Hospitalization, Other)
  Sender: FDA-Public Use
  Company Number: US-ELI_LILLY_AND_COMPANY-US201007002323

PATIENT
  Sex: Female

DRUGS (14)
  1. CARBIDOPA + LEVODOPA [Concomitant]
  2. PRAVASTATIN [Concomitant]
  3. NITROGLYCERIN [Concomitant]
     Route: 062
  4. DUONEB [Concomitant]
  5. CITALOPRAM HYDROBROMIDE [Concomitant]
     Dosage: 10 MG, QD
  6. BUDESONIDE [Concomitant]
  7. CALCIUM [Concomitant]
  8. OMEPRAZOLE [Concomitant]
  9. WARFARIN SODIUM [Concomitant]
  10. VITAMIN C [Concomitant]
  11. FORTEO [Suspect]
     Indication: OSTEOPOROSIS
     Dosage: 20 UG, QD
  12. VITAMIN D [Concomitant]
  13. DIGOXIN [Concomitant]
  14. BROVANA [Concomitant]

REACTIONS (7)
  - BLOOD PRESSURE DECREASED [None]
  - BLOOD PRESSURE ORTHOSTATIC ABNORMAL [None]
  - BONE DENSITY DECREASED [None]
  - BALANCE DISORDER [None]
  - FALL [None]
  - HIP FRACTURE [None]
  - LACUNAR INFARCTION [None]
